FAERS Safety Report 8469927 (Version 2)
Quarter: 2013Q2

REPORT INFORMATION
  Report Type: Spontaneous
  Country: US (occurrence: None)
  Receive Date: 20120305
  Receipt Date: 20120831
  Transmission Date: 20140414
  Serious: Yes (Other)
  Sender: FDA-Public Use
  Company Number: 1000026244

PATIENT
  Age: 56 Year
  Sex: Male

DRUGS (11)
  1. DALIRESP (ROFLUMILAST) (500 MICROGRAM, TABLETS) [Suspect]
     Indication: CHRONIC OBSTRUCTIVE PULMONARY DISEASE
     Dosage: ORAL
     Route: 048
     Dates: start: 20111115, end: 20111117
  2. JANUVIA (SITAGLIPTIN PHOSPHATE) [Concomitant]
  3. ALBUTEROL (ALBUTEROL) [Concomitant]
  4. PREDNISONE (PREDNISONE) [Concomitant]
  5. ENALAPRIL (ENALAPRIL) [Concomitant]
  6. METFORMIN (METFORMIN) [Concomitant]
  7. GLIPIZIDE (GLIPIZIDE) [Concomitant]
  8. ASPIRIN (ACETYLSALICYLIC ACID) [Concomitant]
  9. SPIRIVA (TIOTROPIUM BROMIDE) [Concomitant]
  10. ADVAIR (FLUTICASONE) [Concomitant]
  11. THEO-DUR (THEOPHYLLINE) [Concomitant]

REACTIONS (1)
  - SUICIDAL IDEATION [None]
